FAERS Safety Report 4924003-3 (Version None)
Quarter: 2006Q1

REPORT INFORMATION
  Report Type: 
  Country: None (occurrence: None)
  Receive Date: 20060227
  Receipt Date: 20050816
  Transmission Date: 20060701
  Serious: Yes (Hospitalization, Disabling)
  Sender: FDA-Public Use
  Company Number: US-MERCK-0508USA03112

PATIENT
  Age: 54 Year
  Sex: Male
  Weight: 100 kg

DRUGS (2)
  1. VIOXX [Suspect]
     Indication: CARPAL TUNNEL SYNDROME
     Route: 048
     Dates: start: 20011108, end: 20020101
  2. VIOXX [Suspect]
     Route: 048
     Dates: start: 20020314

REACTIONS (23)
  - ACUTE MYOCARDIAL INFARCTION [None]
  - AORTIC VALVE CALCIFICATION [None]
  - ARTHRALGIA [None]
  - BACK PAIN [None]
  - CARDIAC ARREST [None]
  - CARDIOVASCULAR DISORDER [None]
  - CAROTID ARTERY OCCLUSION [None]
  - CARPAL TUNNEL SYNDROME [None]
  - CONDITION AGGRAVATED [None]
  - CORONARY ARTERY OCCLUSION [None]
  - DIVERTICULUM [None]
  - DYSPEPSIA [None]
  - ELECTROCARDIOGRAM ST SEGMENT ELEVATION [None]
  - GASTRIC ULCER [None]
  - HAEMATOCHEZIA [None]
  - HAEMORRHOIDS [None]
  - HIATUS HERNIA [None]
  - INSOMNIA [None]
  - JOINT INJURY [None]
  - MYOCARDIAL ISCHAEMIA [None]
  - VENTRICULAR DYSFUNCTION [None]
  - VENTRICULAR HYPOKINESIA [None]
  - VERTEBRAL INJURY [None]
